FAERS Safety Report 21690615 (Version 1)
Quarter: 2022Q4

REPORT INFORMATION
  Report Type: Other
  Country: None (occurrence: EG)
  Receive Date: 20221206
  Receipt Date: 20221206
  Transmission Date: 20230112
  Serious: Yes (Other)
  Sender: FDA-Public Use
  Company Number: EG-OrBion Pharmaceuticals Private Limited-2135624

PATIENT
  Age: 31 Year
  Sex: Male

DRUGS (1)
  1. MODAFINIL [Suspect]
     Active Substance: MODAFINIL
     Indication: Stress
     Route: 065

REACTIONS (4)
  - Substance-induced mood disorder [Unknown]
  - Withdrawal syndrome [Unknown]
  - Overdose [Unknown]
  - Intentional product misuse [Unknown]
